FAERS Safety Report 5950119-9 (Version None)
Quarter: 2008Q4

REPORT INFORMATION
  Report Type: 
  Country: None (occurrence: None)
  Receive Date: 20081112
  Receipt Date: 20081105
  Transmission Date: 20090506
  Serious: Yes (Hospitalization)
  Sender: FDA-Public Use
  Company Number: AU-ROCHE-510846

PATIENT
  Sex: Female
  Weight: 53 kg

DRUGS (4)
  1. CAPECITABINE [Suspect]
     Dosage: GIVEN ON DAY 1 TO 14 EVERY THREE WEEKS. STRENGTH 150/500 MG.
     Route: 048
     Dates: start: 20060515
  2. BEVACIZUMAB [Suspect]
     Dosage: GIVEN ON DAY ONE EVERY THREE WEEKS. STRENGTH: 100/400 MG
     Route: 042
     Dates: start: 20060515
  3. MITOMYCIN [Suspect]
     Dosage: GIVEN ON DAY 1 EVERY SIX WEEKS. MAXIMUM DOSE FOR MITOMYCIN C IS 14 MG AND THE MAXIMUM NUMBER OF TRE+
     Route: 042
     Dates: start: 20060515
  4. SOLPRIN [Concomitant]
     Indication: PROPHYLAXIS
     Route: 048
     Dates: start: 19960101

REACTIONS (2)
  - HYPERTENSION [None]
  - PROTEINURIA [None]
